FAERS Safety Report 15222566 (Version 1)
Quarter: 2018Q3

REPORT INFORMATION
  Report Type: Report from Study
  Country: DE (occurrence: DE)
  Receive Date: 20180731
  Receipt Date: 20180731
  Transmission Date: 20181010
  Serious: Yes (Hospitalization, Other)
  Sender: FDA-Public Use
  Company Number: DE-MYLANLABS-2017M1078351

PATIENT
  Age: 72 Year
  Sex: Female

DRUGS (5)
  1. PROGRAF [Suspect]
     Active Substance: TACROLIMUS\TACROLIMUS ANHYDROUS
     Dosage: UNK UNK, QD (ONCE DAILY)
     Route: 065
  2. CELLCEPT [Concomitant]
     Active Substance: MYCOPHENOLATE MOFETIL\MYCOPHENOLATE MOFETIL HYDROCHLORIDE
     Indication: IMMUNOSUPPRESSION
     Dosage: 2 G, QD (DAILY DOSE: 2 G GRAM(S) EVERY DAY)
     Route: 048
     Dates: start: 20150202
  3. PROGRAF [Suspect]
     Active Substance: TACROLIMUS\TACROLIMUS ANHYDROUS
     Indication: IMMUNOSUPPRESSION
     Dosage: 2 MG, QD (DAILY DOSE: 2 MG MILLIGRAM(S) EVERY DAY)
     Route: 048
     Dates: start: 20150202
  4. DECORTIN [Concomitant]
     Active Substance: PREDNISONE
     Indication: IMMUNOSUPPRESSION
     Dosage: 5 MG, QD (DAILY DOSE: 5 MG MILLIGRAM(S) EVERY DAY)
     Route: 048
     Dates: start: 20150202
  5. TACROLIMUS. [Suspect]
     Active Substance: TACROLIMUS
     Indication: IMMUNOSUPPRESSION
     Dosage: 2 MG, QD
     Route: 048
     Dates: start: 20150202

REACTIONS (3)
  - Respiratory tract infection [Recovered/Resolved]
  - Atrial fibrillation [Recovered/Resolved]
  - Wrong drug administered [Recovered/Resolved]

NARRATIVE: CASE EVENT DATE: 20150319
